FAERS Safety Report 6803968-9 (Version None)
Quarter: 2010Q2

REPORT INFORMATION
  Report Type: 
  Country: None (occurrence: None)
  Receive Date: 20100628
  Receipt Date: 20060510
  Transmission Date: 20101027
  Serious: Yes (Other)
  Sender: FDA-Public Use
  Company Number: US-PFIZER INC-2006052186

PATIENT
  Sex: Male

DRUGS (1)
  1. SUTENT [Suspect]
     Indication: ILL-DEFINED DISORDER
     Route: 065

REACTIONS (6)
  - ABDOMINAL PAIN [None]
  - CHEILITIS [None]
  - GOUT [None]
  - NAUSEA [None]
  - RASH [None]
  - VOMITING [None]
